FAERS Safety Report 18161113 (Version 2)
Quarter: 2020Q3

REPORT INFORMATION
  Report Type: Spontaneous
  Country: AU (occurrence: AU)
  Receive Date: 20200818
  Receipt Date: 20200904
  Transmission Date: 20201103
  Serious: Yes (Life-Threatening, Hospitalization, Other)
  Sender: FDA-Public Use
  Company Number: AU-LUPIN PHARMACEUTICALS INC.-2020-04763

PATIENT
  Age: 55 Year
  Sex: Female

DRUGS (4)
  1. OXYCODONE [Suspect]
     Active Substance: OXYCODONE
     Indication: PRODUCT USED FOR UNKNOWN INDICATION
     Dosage: 75 MILLIGRAM, IN TOTAL
     Route: 065
  2. TEMAZEPAM. [Suspect]
     Active Substance: TEMAZEPAM
     Indication: PRODUCT USED FOR UNKNOWN INDICATION
     Dosage: 120 MILLIGRAM, IN TOTAL
     Route: 065
  3. OXAZEPAM. [Suspect]
     Active Substance: OXAZEPAM
     Indication: PRODUCT USED FOR UNKNOWN INDICATION
     Dosage: 80 MILLIGRAM, IN TOTAL
     Route: 065
  4. PAROXETINE. [Suspect]
     Active Substance: PAROXETINE
     Indication: PRODUCT USED FOR UNKNOWN INDICATION
     Dosage: 1600 MILLIGRAM, IN TOTAL
     Route: 065

REACTIONS (17)
  - Thrombocytopenia [Recovering/Resolving]
  - Anaemia [Recovering/Resolving]
  - Septic shock [Recovering/Resolving]
  - Toxicity to various agents [Unknown]
  - Intentional overdose [Unknown]
  - Coagulopathy [Recovering/Resolving]
  - Respiratory depression [Recovered/Resolved]
  - Respiratory acidosis [Recovering/Resolving]
  - Hyperthermia [Recovering/Resolving]
  - Hypoxia [Recovering/Resolving]
  - Coma [Recovered/Resolved with Sequelae]
  - Hyperkalaemia [Recovering/Resolving]
  - Distributive shock [Recovering/Resolving]
  - Shock [Recovering/Resolving]
  - Leukopenia [Recovering/Resolving]
  - Serotonin syndrome [Recovered/Resolved]
  - Gastrointestinal haemorrhage [Recovering/Resolving]
